FAERS Safety Report 14454709 (Version 4)
Quarter: 2018Q4

REPORT INFORMATION
  Report Type: Spontaneous
  Country: US (occurrence: US)
  Receive Date: 20180129
  Receipt Date: 20181218
  Transmission Date: 20190204
  Serious: Yes (Hospitalization, Other)
  Sender: FDA-Public Use
  Company Number: US-DSJP-DSU-2017-141131

PATIENT

DRUGS (3)
  1. BENICAR HCT [Suspect]
     Active Substance: HYDROCHLOROTHIAZIDE\OLMESARTAN MEDOXOMIL
     Dosage: 20-12.5MG 1/2 TABLET, AS NEEDED
     Route: 048
     Dates: start: 20130107
  2. BENICAR HCT [Suspect]
     Active Substance: HYDROCHLOROTHIAZIDE\OLMESARTAN MEDOXOMIL
     Indication: PRODUCT USED FOR UNKNOWN INDICATION
     Dosage: 20-12.5 MG, QD
     Route: 048
     Dates: start: 20110701, end: 20141012
  3. BENICAR [Suspect]
     Active Substance: OLMESARTAN MEDOXOMIL
     Indication: PRODUCT USED FOR UNKNOWN INDICATION
     Dosage: UNK
     Dates: start: 20110701, end: 20141014

REACTIONS (12)
  - Oesophageal candidiasis [Unknown]
  - Acute kidney injury [Recovering/Resolving]
  - Diverticulitis [Not Recovered/Not Resolved]
  - Large intestine polyp [Recovered/Resolved]
  - Haematemesis [Unknown]
  - Hiatus hernia [Unknown]
  - Colitis ulcerative [Unknown]
  - Sprue-like enteropathy [Recovering/Resolving]
  - Gastrooesophageal reflux disease [Unknown]
  - Haemorrhoids [Unknown]
  - Product administration error [Unknown]
  - Dizziness [Recovering/Resolving]

NARRATIVE: CASE EVENT DATE: 20110715
